FAERS Safety Report 19990372 (Version 4)
Quarter: 2022Q3

REPORT INFORMATION
  Report Type: Report from Study
  Country: CO (occurrence: CO)
  Receive Date: 20211025
  Receipt Date: 20220707
  Transmission Date: 20221027
  Serious: Yes (Other)
  Sender: FDA-Public Use
  Company Number: NVSC2021CO174745

PATIENT
  Sex: Female
  Weight: 53 kg

DRUGS (7)
  1. COSENTYX [Suspect]
     Active Substance: SECUKINUMAB
     Indication: Psoriasis
     Dosage: 300 MG, QMO
     Route: 058
     Dates: start: 20210721
  2. COSENTYX [Suspect]
     Active Substance: SECUKINUMAB
     Dosage: 300 MG, QMO
     Route: 058
  3. COSENTYX [Suspect]
     Active Substance: SECUKINUMAB
     Dosage: UNK
     Route: 065
     Dates: start: 202111
  4. COSENTYX [Suspect]
     Active Substance: SECUKINUMAB
     Dosage: UNK (ON 23 JUN)
     Route: 065
  5. LEVOTHYROXINE [Concomitant]
     Active Substance: LEVOTHYROXINE
     Indication: Hypothyroidism
     Dosage: 50 MG, QD (STARTED MORE THAN 15 YEARS AGO)
     Route: 048
  6. METOPROLOL [Concomitant]
     Active Substance: METOPROLOL
     Indication: Hypertension
     Dosage: 50 MG, Q12H (STARTED MORE THAN 15 YEARS AGO)
     Route: 048
  7. AMLODIPINE [Concomitant]
     Active Substance: AMLODIPINE BESYLATE
     Indication: Hypertension
     Dosage: 10 MG, Q24H (STARTED MORE THAN 5 YEARS AGO)
     Route: 048

REACTIONS (10)
  - Suicidal ideation [Unknown]
  - Cataract [Unknown]
  - Depression [Unknown]
  - Illness [Unknown]
  - Depressed mood [Unknown]
  - Boredom [Unknown]
  - Psoriasis [Unknown]
  - Pruritus [Unknown]
  - Anxiety [Unknown]
  - Condition aggravated [Unknown]
